FAERS Safety Report 6592892-5 (Version None)
Quarter: 2010Q1

REPORT INFORMATION
  Report Type: 
  Country: None (occurrence: None)
  Receive Date: 20100222
  Receipt Date: 20100211
  Transmission Date: 20100710
  Serious: Yes (Hospitalization)
  Sender: FDA-Public Use
  Company Number: CO-ELI_LILLY_AND_COMPANY-CO201002003421

PATIENT
  Sex: Female

DRUGS (2)
  1. HUMULIN N [Suspect]
     Indication: DIABETES MELLITUS
     Dosage: UNK, UNKNOWN
     Route: 065
  2. METFORMIN [Concomitant]
     Dosage: UNK, UNKNOWN
     Route: 065

REACTIONS (5)
  - EMPHYSEMA [None]
  - FLUID RETENTION [None]
  - HYPERGLYCAEMIA [None]
  - RESPIRATORY DISORDER [None]
  - WEIGHT INCREASED [None]
